FAERS Safety Report 9221702 (Version 1)
Quarter: 2013Q1

REPORT INFORMATION
  Report Type: Spontaneous
  Country: US (occurrence: None)
  Receive Date: 20120831
  Receipt Date: 20120831
  Transmission Date: 20140127
  Serious: No
  Sender: FDA-Public Use
  Company Number: 1000030225

PATIENT
  Age: 59 Year
  Sex: Male

DRUGS (4)
  1. DALIRESP [Suspect]
     Indication: CHRONIC OBSTRUCTIVE PULMONARY DISEASE
     Route: 048
     Dates: start: 201204
  2. DALIRESP [Suspect]
     Indication: BRONCHITIS
     Route: 048
     Dates: start: 201204
  3. ADVAIR (SERETIDE) [Concomitant]
  4. INHALERS NOS [Concomitant]

REACTIONS (3)
  - Sinus disorder [None]
  - Nasal dryness [None]
  - Chest discomfort [None]
